FAERS Safety Report 10309695 (Version 1)
Quarter: 2014Q3

REPORT INFORMATION
  Report Type: Spontaneous
  Country: US (occurrence: US)
  Receive Date: 20140717
  Receipt Date: 20140717
  Transmission Date: 20150326
  Serious: Yes (Other)
  Sender: FDA-Public Use
  Company Number: US-ROCHE-1436420

PATIENT
  Age: 37 Year
  Sex: Female
  Weight: 66.4 kg

DRUGS (1)
  1. XOLAIR [Suspect]
     Active Substance: OMALIZUMAB
     Indication: ASTHMA
     Route: 058
     Dates: start: 20130725, end: 20130820

REACTIONS (2)
  - Blood immunoglobulin E increased [Unknown]
  - Hypersensitivity [Recovered/Resolved]

NARRATIVE: CASE EVENT DATE: 20130911
